FAERS Safety Report 20358992 (Version 1)
Quarter: 2022Q1

REPORT INFORMATION
  Report Type: Spontaneous
  Country: US (occurrence: US)
  Receive Date: 20220120
  Receipt Date: 20220120
  Transmission Date: 20220423
  Serious: Yes (Other)
  Sender: FDA-Public Use
  Company Number: US-BEH-2022140577

PATIENT
  Age: 20 Year
  Sex: Male

DRUGS (2)
  1. PRIVIGEN [Suspect]
     Active Substance: HUMAN IMMUNOGLOBULIN G
     Indication: Hypogammaglobulinaemia
     Dosage: UNK, PRN
     Route: 042
     Dates: start: 20211220, end: 20211220
  2. PRIVIGEN [Suspect]
     Active Substance: HUMAN IMMUNOGLOBULIN G
     Indication: Secondary immunodeficiency

REACTIONS (5)
  - Enterovirus infection [Unknown]
  - Back pain [Unknown]
  - Rhinovirus infection [Unknown]
  - Nasopharyngitis [Unknown]
  - Pain [Unknown]

NARRATIVE: CASE EVENT DATE: 20211220
